FAERS Safety Report 21033142 (Version 2)
Quarter: 2022Q3

REPORT INFORMATION
  Report Type: Report from Study
  Country: GB (occurrence: GB)
  Receive Date: 20220701
  Receipt Date: 20220806
  Transmission Date: 20221027
  Serious: Yes (Hospitalization, Other)
  Sender: FDA-Public Use
  Company Number: None

PATIENT
  Age: 43 Year
  Sex: Female

DRUGS (51)
  1. DOCETAXEL [Suspect]
     Active Substance: DOCETAXEL
     Indication: Breast cancer metastatic
     Dosage: 130 MG, EVERY 3 WEEKS
     Route: 042
     Dates: start: 20150616, end: 20150709
  2. PACLITAXEL [Suspect]
     Active Substance: PACLITAXEL
     Indication: Breast cancer metastatic
     Dosage: LOADING DOSE450 MG FROM 30-JUL-2015 TO 20-AUG-2015CUMULATIVE:857.1429 MG, 1020 MG
     Route: 042
     Dates: start: 20150910, end: 20151022
  3. PERTUZUMAB [Suspect]
     Active Substance: PERTUZUMAB
     Indication: Breast cancer metastatic
     Dosage: MAINTAINACE DOSE
     Route: 042
     Dates: start: 20150709, end: 20150709
  4. HERCEPTIN [Suspect]
     Active Substance: TRASTUZUMAB
     Indication: Breast cancer metastatic
     Dosage: LOADING DOSE. RECEIVED MAINTAINANCE DOSE 420 MG ON 09-JUL-2015
     Route: 042
     Dates: start: 20150616, end: 20150616
  5. BENZYDAMINE [Suspect]
     Active Substance: BENZYDAMINE
     Indication: Mucosal inflammation
     Dosage: LIQUID MOUTHWASH 15 ML/CM3
     Route: 048
  6. LOPERAMIDE [Suspect]
     Active Substance: LOPERAMIDE
     Indication: Diarrhoea
     Dosage: AS NEEDED
     Route: 048
  7. TRASTUZUMAB [Suspect]
     Active Substance: TRASTUZUMAB
     Indication: Breast cancer metastatic
     Dosage: 567 MG (LOADING DOSE) (TOTAL), INTRAVENOUS DRIP
     Route: 042
     Dates: start: 20150616, end: 20150616
  8. DOMPERIDONE [Concomitant]
     Active Substance: DOMPERIDONE
     Route: 048
     Dates: start: 20150709
  9. CHLORPHENIRAMINE MALEATE [Concomitant]
     Active Substance: CHLORPHENIRAMINE MALEATE
     Route: 042
     Dates: start: 20150709, end: 20150709
  10. METFORMIN [Concomitant]
     Active Substance: METFORMIN HYDROCHLORIDE
     Indication: Diabetes mellitus
     Route: 048
  11. COCODAMOL [Concomitant]
     Active Substance: ACETAMINOPHEN\CODEINE PHOSPHATE
     Route: 048
  12. HYDROCORTISONE [Concomitant]
     Active Substance: HYDROCORTISONE
     Route: 042
     Dates: start: 20150709, end: 20150709
  13. TRAMADOL [Concomitant]
     Active Substance: TRAMADOL
     Indication: Pain
     Route: 048
  14. AMOXICILLIN\CLAVULANATE POTASSIUM [Concomitant]
     Active Substance: AMOXICILLIN\CLAVULANATE POTASSIUM
     Indication: Cough
     Dosage: COUGH WITH YELLOW SPUTUM
     Route: 048
     Dates: start: 20180110, end: 20180117
  15. IMODIUM [Suspect]
     Active Substance: LOPERAMIDE HYDROCHLORIDE
     Indication: Diarrhoea
     Dosage: 2 MG, PRN; AS NECESSARY
     Route: 048
  16. ABRAXANE [Suspect]
     Active Substance: PACLITAXEL
     Indication: Product used for unknown indication
     Dosage: 1020 MG, 1/WEEK (340 MILLIGRAM PHARMACEUTICAL DOSE FORM: 120), INTRAVENOUS DRIP
     Route: 042
     Dates: start: 20150820, end: 20150820
  17. CODEINE PHOSPHATE [Concomitant]
     Active Substance: CODEINE PHOSPHATE
     Indication: Product used for unknown indication
     Dosage: 500 MILLIGRAM, QD
     Route: 048
  18. TRASTUZUMAB [Suspect]
     Active Substance: TRASTUZUMAB
     Dosage: 1260 MG, 1/WEEK (420 MILLIGRAM)
     Dates: start: 20150609
  19. ABRAXANE [Suspect]
     Active Substance: PACLITAXEL
     Indication: Product used for unknown indication
     Dosage: 1020 MG, 1/WEEK, 340 MILLIGRAM
     Dates: start: 20151022, end: 20151022
  20. DOMPERIDONE [Concomitant]
     Active Substance: DOMPERIDONE
     Dosage: 30 MG, QD
     Route: 048
     Dates: start: 20190709
  21. METFORMIN [Concomitant]
     Active Substance: METFORMIN HYDROCHLORIDE
     Indication: Diabetes mellitus
     Dosage: 2 G, QD
     Route: 048
  22. PERTUZUMAB [Suspect]
     Active Substance: PERTUZUMAB
     Indication: Breast cancer metastatic
     Dosage: MAINTAINACE DOSE
     Route: 042
     Dates: start: 20150615, end: 20150615
  23. DOCETAXEL [Suspect]
     Active Substance: DOCETAXEL
     Indication: Breast cancer metastatic
     Dosage: 130MG
     Route: 042
     Dates: start: 20150616, end: 20150616
  24. DOCETAXEL [Suspect]
     Active Substance: DOCETAXEL
     Indication: Breast cancer metastatic
     Dosage: 130 MG, BIW (130 MG, Q3W)
     Route: 042
     Dates: start: 20150709, end: 20150709
  25. DOCETAXEL [Suspect]
     Active Substance: DOCETAXEL
     Indication: Breast cancer metastatic
     Dosage: 260, 780 MG
     Route: 042
  26. HERCEPTIN [Suspect]
     Active Substance: TRASTUZUMAB
     Indication: Breast cancer metastatic
     Dosage: 420 MG, BIW (420 MG, Q3W)
     Route: 042
     Dates: start: 20150709, end: 20150709
  27. COCODAMOL [Concomitant]
     Active Substance: ACETAMINOPHEN\CODEINE PHOSPHATE
     Indication: Product used for unknown indication
     Dosage: 2000 MG, QD
     Route: 048
  28. TRAMADOL [Concomitant]
     Active Substance: TRAMADOL
     Indication: Pain
     Dosage: 100 MG, QD
     Route: 048
  29. PERTUZUMAB [Suspect]
     Active Substance: PERTUZUMAB
     Indication: Breast cancer metastatic
     Dosage: 567 MG (LOADING DOSE) (TOTAL), INTRAVENOUS DRIP
     Route: 042
     Dates: start: 20150616, end: 20150616
  30. TRASTUZUMAB [Suspect]
     Active Substance: TRASTUZUMAB
     Indication: Breast cancer metastatic
     Dosage: 420 MG, TIW (MAINTAINANCE DOSE), INTRAVENOUS DRIP, 1260 MG, 1/WEEK (420 MILLIGRAM)
     Route: 042
     Dates: start: 20150709, end: 20150709
  31. DOCETAXEL [Suspect]
     Active Substance: DOCETAXEL
     Indication: Breast cancer metastatic
     Dosage: 130 MG, EVERY 3 WEEKS
     Route: 042
     Dates: start: 20150616, end: 20150709
  32. TRASTUZUMAB [Suspect]
     Active Substance: TRASTUZUMAB
     Indication: Product used for unknown indication
     Dosage: 567 MG (LOADING DOSE) (TOTAL), INTRAVENOUS DRIP
     Route: 042
     Dates: start: 20150516, end: 20150516
  33. PACLITAXEL [Suspect]
     Active Substance: PACLITAXEL
     Indication: Breast cancer metastatic
     Dosage: LOADING DOSE
     Route: 042
     Dates: start: 20150730, end: 20150820
  34. PACLITAXEL [Suspect]
     Active Substance: PACLITAXEL
     Indication: Breast cancer metastatic
     Route: 042
     Dates: start: 20151022, end: 20151022
  35. PACLITAXEL [Suspect]
     Active Substance: PACLITAXEL
     Indication: Breast cancer metastatic
     Dosage: 450 MG,Q3W, 1350 MG
     Route: 042
     Dates: start: 20150730, end: 20150730
  36. PACLITAXEL [Suspect]
     Active Substance: PACLITAXEL
     Indication: Breast cancer metastatic
     Dosage: 450 MG, Q3W
     Route: 042
     Dates: start: 20150820, end: 20150820
  37. PACLITAXEL [Suspect]
     Active Substance: PACLITAXEL
     Indication: Breast cancer metastatic
     Route: 042
     Dates: start: 20150910, end: 20150910
  38. PACLITAXEL [Suspect]
     Active Substance: PACLITAXEL
     Indication: Product used for unknown indication
     Dosage: 567 MG, TOTAL, 1701 MG
     Route: 042
     Dates: start: 20150616, end: 20150616
  39. PACLITAXEL [Suspect]
     Active Substance: PACLITAXEL
     Indication: Product used for unknown indication
     Dosage: 340 MG, Q3W
     Route: 042
     Dates: start: 20150609, end: 20150609
  40. PACLITAXEL [Suspect]
     Active Substance: PACLITAXEL
     Indication: Breast cancer metastatic
     Dosage: 450 MG, BIW (450 MG, Q3W)
     Route: 042
     Dates: start: 20150820, end: 20150820
  41. PACLITAXEL [Suspect]
     Active Substance: PACLITAXEL
     Indication: Breast cancer metastatic
     Dosage: 420 MILLIGRAM, Q3WK, 340 MG,Q3W
     Route: 042
     Dates: start: 20150709, end: 20150709
  42. ABRAXANE [Suspect]
     Active Substance: PACLITAXEL
     Indication: Product used for unknown indication
     Dosage: 1020 MG, 1/WEEK (340 MILLIGRAM PHARMACEUTICAL DOSE FORM: 120), INTRAVENOUS DRIP
     Route: 042
     Dates: start: 20150822, end: 20150822
  43. ABRAXANE [Suspect]
     Active Substance: PACLITAXEL
     Indication: Product used for unknown indication
     Dosage: 1020 MG, 1/WEEK (340 MILLIGRAM PHARMACEUTICAL DOSE FORM: 120), INTRAVENOUS DRIP
     Route: 042
     Dates: start: 20150910, end: 20150910
  44. ABRAXANE [Suspect]
     Active Substance: PACLITAXEL
     Indication: Product used for unknown indication
     Dosage: 1020 MG, 1/WEEK (340 MILLIGRAM PHARMACEUTICAL DOSE FORM: 120), INTRAVENOUS DRIP
     Route: 042
     Dates: start: 20150615, end: 20150615
  45. ABRAXANE [Suspect]
     Active Substance: PACLITAXEL
     Indication: Product used for unknown indication
     Dosage: 1020 MG, 1/WEEK (340 MILLIGRAM PHARMACEUTICAL DOSE FORM: 120), INTRAVENOUS DRIP
     Route: 042
     Dates: start: 20150730, end: 20150820
  46. ABRAXANE [Suspect]
     Active Substance: PACLITAXEL
     Indication: Product used for unknown indication
     Dosage: 1020 MG, 1/WEEK (340 MILLIGRAM PHARMACEUTICAL DOSE FORM: 120), INTRAVENOUS DRIP
     Route: 042
     Dates: start: 20150709, end: 20150709
  47. ABRAXANE [Suspect]
     Active Substance: PACLITAXEL
     Indication: Product used for unknown indication
     Dosage: 1020 MG, 1/WEEK (340 MILLIGRAM PHARMACEUTICAL DOSE FORM: 120), INTRAVENOUS DRIP, 1701 MG
     Route: 042
     Dates: start: 20150616, end: 20150616
  48. ABRAXANE [Suspect]
     Active Substance: PACLITAXEL
     Indication: Product used for unknown indication
     Dosage: 1020 MG, 1/WEEK (340 MILLIGRAM PHARMACEUTICAL DOSE FORM: 120), INTRAVENOUS DRIP
     Route: 042
     Dates: start: 20150730, end: 20150730
  49. PERTUZUMAB [Suspect]
     Active Substance: PERTUZUMAB
     Indication: Breast cancer metastatic
     Dosage: MAINTAINACE DOSE, 10 MG, QD
     Route: 042
     Dates: start: 20150907, end: 20150907
  50. PERTUZUMAB [Suspect]
     Active Substance: PERTUZUMAB
     Indication: Breast cancer metastatic
     Dosage: LOADING DOSE, 2520 MG
     Route: 042
     Dates: start: 20150615, end: 20150615
  51. HERCEPTIN [Suspect]
     Active Substance: TRASTUZUMAB
     Indication: Product used for unknown indication
     Dosage: MAINTAINANCE DOSE.
     Route: 042
     Dates: start: 20150709

REACTIONS (10)
  - Diarrhoea [Recovered/Resolved]
  - Chest pain [Recovered/Resolved]
  - Mucosal inflammation [Recovered/Resolved]
  - Swelling [Not Recovered/Not Resolved]
  - Neuropathy peripheral [Recovered/Resolved]
  - Fatigue [Recovered/Resolved]
  - Febrile neutropenia [Recovered/Resolved]
  - Nausea [Not Recovered/Not Resolved]
  - Vomiting [Not Recovered/Not Resolved]
  - Bone pain [Not Recovered/Not Resolved]

NARRATIVE: CASE EVENT DATE: 20150908
